FAERS Safety Report 6344377-9 (Version None)
Quarter: 2009Q3

REPORT INFORMATION
  Report Type: 
  Country: None (occurrence: None)
  Receive Date: 20090821
  Receipt Date: 20090505
  Transmission Date: 20100115
  Serious: No
  Sender: FDA-Public Use
  Company Number: 8045752

PATIENT
  Age: 22 Year
  Sex: Female

DRUGS (2)
  1. CIMZIA [Suspect]
     Indication: CROHN'S DISEASE
     Dosage: 400 MG SC
     Route: 058
     Dates: start: 20080901
  2. PENTASA [Concomitant]

REACTIONS (2)
  - INJECTION SITE HAEMATOMA [None]
  - INJECTION SITE HAEMORRHAGE [None]
